FAERS Safety Report 19513101 (Version 2)
Quarter: 2021Q3

REPORT INFORMATION
  Report Type: Spontaneous
  Country: US (occurrence: US)
  Receive Date: 20210709
  Receipt Date: 20210719
  Transmission Date: 20211014
  Serious: Yes (Other)
  Sender: FDA-Public Use
  Company Number: US-PFIZER INC-2021825064

PATIENT
  Age: 45 Year
  Sex: Female

DRUGS (2)
  1. HYDROXYAMPHETAMINE HYDROBROMIDE [Concomitant]
     Active Substance: HYDROXYAMPHETAMINE HYDROBROMIDE
     Dosage: UNK
  2. BOSULIF [Suspect]
     Active Substance: BOSUTINIB MONOHYDRATE
     Dosage: 500 MG, 1X/DAY
     Route: 048

REACTIONS (2)
  - Haematochezia [Unknown]
  - Diarrhoea [Unknown]
